FAERS Safety Report 13162334 (Version 6)
Quarter: 2022Q3

REPORT INFORMATION
  Report Type: Report from Study
  Country: CA (occurrence: CA)
  Receive Date: 20170130
  Receipt Date: 20220813
  Transmission Date: 20221027
  Serious: Yes (Hospitalization)
  Sender: FDA-Public Use
  Company Number: PHHY2017CA009523

PATIENT
  Age: 61 Year
  Sex: Male

DRUGS (17)
  1. COSENTYX [Suspect]
     Active Substance: SECUKINUMAB
     Indication: Psoriatic arthropathy
     Dosage: 300 MG, Q3W
     Route: 058
     Dates: start: 20160901, end: 20160922
  2. COSENTYX [Suspect]
     Active Substance: SECUKINUMAB
     Dosage: 300 MG, QMO
     Route: 058
     Dates: start: 20160929
  3. COSENTYX [Suspect]
     Active Substance: SECUKINUMAB
     Dosage: 300 MG, QMO
     Route: 058
     Dates: start: 20161229
  4. COSENTYX [Suspect]
     Active Substance: SECUKINUMAB
     Dosage: 300 MG, QMO
     Route: 058
     Dates: start: 20170301
  5. COSENTYX [Suspect]
     Active Substance: SECUKINUMAB
     Dosage: 300 MG, QMO
     Route: 058
     Dates: start: 20170329
  6. COSENTYX [Suspect]
     Active Substance: SECUKINUMAB
     Dosage: 300 MG, QMO
     Route: 058
     Dates: start: 20170829
  7. COSENTYX [Suspect]
     Active Substance: SECUKINUMAB
     Dosage: 300 MG, QMO
     Route: 058
     Dates: start: 20180629
  8. COSENTYX [Suspect]
     Active Substance: SECUKINUMAB
     Dosage: 300 MG, QMO
     Route: 058
     Dates: start: 201807
  9. COSENTYX [Suspect]
     Active Substance: SECUKINUMAB
     Dosage: 300 MG, Q3W
     Route: 058
     Dates: start: 2018
  10. COSENTYX [Suspect]
     Active Substance: SECUKINUMAB
     Dosage: 300 MG, Q3W
     Route: 058
     Dates: start: 20190125
  11. COSENTYX [Suspect]
     Active Substance: SECUKINUMAB
     Dosage: 300 MG, Q3W
     Route: 058
     Dates: start: 20190821
  12. COSENTYX [Suspect]
     Active Substance: SECUKINUMAB
     Dosage: 300 MG, Q3W
     Route: 058
     Dates: start: 20220308
  13. METHOTREXATE [Concomitant]
     Active Substance: METHOTREXATE
     Indication: Product used for unknown indication
     Dosage: UNK UNK, QW
     Route: 065
  14. SIMPONI [Concomitant]
     Active Substance: GOLIMUMAB
     Indication: Product used for unknown indication
     Dosage: UNK
     Route: 065
  15. HUMIRA [Concomitant]
     Active Substance: ADALIMUMAB
     Indication: Product used for unknown indication
     Dosage: UNK
     Route: 065
  16. ENBREL [Concomitant]
     Active Substance: ETANERCEPT
     Indication: Product used for unknown indication
     Dosage: UNK
     Route: 065
  17. REMICADE [Concomitant]
     Active Substance: INFLIXIMAB
     Indication: Product used for unknown indication
     Dosage: UNK
     Route: 065

REACTIONS (31)
  - Encephalopathy [Unknown]
  - Oedema peripheral [Recovering/Resolving]
  - Gait disturbance [Unknown]
  - Injection site pain [Unknown]
  - Ear discomfort [Unknown]
  - Pain [Unknown]
  - Somnolence [Unknown]
  - Gastrointestinal disorder [Unknown]
  - Injection site erythema [Unknown]
  - Injection site paraesthesia [Recovered/Resolved]
  - Injection site irritation [Recovered/Resolved]
  - Fall [Unknown]
  - Pruritus [Unknown]
  - Injection site mass [Unknown]
  - Joint swelling [Unknown]
  - Injection site bruising [Unknown]
  - Burning sensation [Unknown]
  - Hypoaesthesia [Recovering/Resolving]
  - Mobility decreased [Unknown]
  - Nervousness [Unknown]
  - Injection site reaction [Unknown]
  - Erythema [Recovered/Resolved]
  - Swelling [Recovered/Resolved]
  - Pain in extremity [Recovered/Resolved]
  - General physical health deterioration [Unknown]
  - Dysstasia [Unknown]
  - Swollen joint count increased [Not Recovered/Not Resolved]
  - Arthritis [Unknown]
  - Off label use [Unknown]
  - Treatment failure [Unknown]
  - Drug ineffective [Unknown]

NARRATIVE: CASE EVENT DATE: 20190125
